FAERS Safety Report 8297449-6 (Version None)
Quarter: 2012Q2

REPORT INFORMATION
  Report Type: 
  Country: None (occurrence: None)
  Receive Date: 20120419
  Receipt Date: 20120405
  Transmission Date: 20120825
  Serious: Yes (Hospitalization)
  Sender: FDA-Public Use
  Company Number: US-RANBAXY-2012US-55578

PATIENT
  Age: 61 Year
  Sex: Female

DRUGS (6)
  1. CLOZAPINE [Interacting]
     Dosage: 300 MG/DAY
     Route: 065
  2. FLUOXETINE [Interacting]
     Indication: NEGATIVE THOUGHTS
  3. CLOZAPINE [Interacting]
     Indication: SCHIZOPHRENIA, PARANOID TYPE
     Dosage: 500 MG/DAY
     Route: 065
  4. TRAZODONE HCL [Suspect]
     Indication: NEGATIVE THOUGHTS
  5. FLUOXETINE [Interacting]
     Indication: INSOMNIA
     Dosage: 40 MG/DAY
     Route: 065
  6. TRAZODONE HCL [Suspect]
     Indication: INSOMNIA
     Dosage: 25 MG/DAY
     Route: 065

REACTIONS (6)
  - CONSTIPATION [None]
  - DRUG LEVEL INCREASED [None]
  - INTESTINAL ISCHAEMIA [None]
  - SMALL INTESTINAL OBSTRUCTION [None]
  - ILEUS PARALYTIC [None]
  - DRUG INTERACTION [None]
